FAERS Safety Report 4632037-1 (Version None)
Quarter: 2005Q2

REPORT INFORMATION
  Report Type: 
  Country: None (occurrence: None)
  Receive Date: 20050331
  Receipt Date: 20040315
  Transmission Date: 20051028
  Serious: Yes (Other)
  Sender: FDA-Public Use
  Company Number: 200411263BCC

PATIENT
  Age: 80 Year
  Sex: Female
  Weight: 95.2554 kg

DRUGS (1)
  1. ALEVE [Suspect]
     Dosage: 660 MG, QOD, ORAL
     Route: 048
     Dates: start: 20031126, end: 20040305

REACTIONS (14)
  - DYSPHAGIA [None]
  - EYE PAIN [None]
  - EYE PRURITUS [None]
  - EYE SWELLING [None]
  - EYELID MARGIN CRUSTING [None]
  - GENITAL RASH [None]
  - HYPERSENSITIVITY [None]
  - OCULAR HYPERAEMIA [None]
  - OEDEMA GENITAL [None]
  - OROPHARYNGEAL SWELLING [None]
  - RASH [None]
  - RASH GENERALISED [None]
  - SWELLING [None]
  - SWELLING FACE [None]
